FAERS Safety Report 23954870 (Version 1)
Quarter: 2024Q2

REPORT INFORMATION
  Report Type: Spontaneous
  Country: NL (occurrence: NL)
  Receive Date: 20240610
  Receipt Date: 20240610
  Transmission Date: 20240716
  Serious: Yes (Hospitalization, Other)
  Sender: FDA-Public Use
  Company Number: NL-Oxford Pharmaceuticals, LLC-2157930

PATIENT
  Age: 8 Year
  Sex: Female

DRUGS (3)
  1. BACLOFEN [Suspect]
     Active Substance: BACLOFEN
     Indication: Cerebral palsy
     Route: 042
  2. FENTANYL [Suspect]
     Active Substance: FENTANYL\FENTANYL CITRATE
     Route: 042
  3. PIRITRAMIDE [Suspect]
     Active Substance: PIRITRAMIDE
     Route: 042

REACTIONS (2)
  - Drug interaction [Unknown]
  - Status epilepticus [Unknown]
